FAERS Safety Report 17346300 (Version 1)
Quarter: 2020Q1

REPORT INFORMATION
  Report Type: Report from Study
  Country: US (occurrence: US)
  Receive Date: 20200129
  Receipt Date: 20200129
  Transmission Date: 20200409
  Serious: No
  Sender: FDA-Public Use
  Company Number: US-EXELIXIS-CABO-19022589

PATIENT
  Age: 59 Year
  Sex: Male

DRUGS (3)
  1. CABOMETYX [Suspect]
     Active Substance: CABOZANTINIB S-MALATE
     Dosage: 20 MG QOD ALTERNATING WITH 40 MG QOD
     Route: 048
     Dates: start: 20190608
  2. CABOMETYX [Suspect]
     Active Substance: CABOZANTINIB S-MALATE
     Dosage: 60 MG QD, (20MG AND 40MG, QD)
     Route: 048
     Dates: start: 201907
  3. CABOMETYX [Suspect]
     Active Substance: CABOZANTINIB S-MALATE
     Indication: RENAL CELL CARCINOMA
     Dosage: 20 MG, QD
     Route: 048
     Dates: start: 20181227

REACTIONS (2)
  - Glossitis [Unknown]
  - Stomatitis [Unknown]

NARRATIVE: CASE EVENT DATE: 201907
